FAERS Safety Report 5034458-4 (Version None)
Quarter: 2006Q2

REPORT INFORMATION
  Report Type: 
  Country: None (occurrence: None)
  Receive Date: 20060620
  Receipt Date: 20060609
  Transmission Date: 20061013
  Serious: Yes (Other)
  Sender: FDA-Public Use
  Company Number: 2006064758

PATIENT
  Age: 78 Year
  Sex: Male

DRUGS (2)
  1. NORVASC [Suspect]
     Indication: ILL-DEFINED DISORDER
     Dosage: 5 MG, ORAL
     Route: 048
  2. BEZAFIBRATE (BEZAFIBRATE) [Suspect]
     Indication: ILL-DEFINED DISORDER

REACTIONS (1)
  - BLOOD CREATINE PHOSPHOKINASE INCREASED [None]
